FAERS Safety Report 25989038 (Version 1)
Quarter: 2025Q4

REPORT INFORMATION
  Report Type: Spontaneous
  Country: US (occurrence: US)
  Receive Date: 20251103
  Receipt Date: 20251103
  Transmission Date: 20260118
  Serious: No
  Sender: TAKEDA
  Company Number: US-TAKEDA-2025TUS093068

PATIENT
  Age: 52 Year
  Sex: Female

DRUGS (4)
  1. ENTYVIO [Suspect]
     Active Substance: VEDOLIZUMAB
     Indication: Colitis ulcerative
     Dosage: 300 MILLIGRAM
  2. PENTASA [Suspect]
     Active Substance: MESALAMINE
     Indication: Product used for unknown indication
  3. LIALDA [Suspect]
     Active Substance: MESALAMINE
     Indication: Product used for unknown indication
     Dosage: UNK
  4. LOSARTAN [Concomitant]
     Active Substance: LOSARTAN
     Dosage: 25 MILLIGRAM, QD

REACTIONS (4)
  - Eye haemorrhage [Unknown]
  - Visual impairment [Unknown]
  - Gastrointestinal infection [Unknown]
  - Hypertension [Unknown]
